FAERS Safety Report 7362285-1 (Version None)
Quarter: 2011Q1

REPORT INFORMATION
  Report Type: 
  Country: None (occurrence: None)
  Receive Date: 20110318
  Receipt Date: 20110309
  Transmission Date: 20110831
  Serious: Yes (Hospitalization, Other)
  Sender: FDA-Public Use
  Company Number: PHHO2011US04449

PATIENT
  Sex: Female
  Weight: 61 kg

DRUGS (6)
  1. GILENYA [Suspect]
     Dosage: 0.5 MG, QD
     Route: 048
     Dates: start: 20091215, end: 20110304
  2. COLACE [Concomitant]
     Indication: ABDOMINAL PAIN
     Dosage: UNK
     Dates: start: 20081016
  3. GILENYA [Suspect]
     Dosage: 0.5 MG, QD
     Route: 048
     Dates: start: 20110307
  4. GILENYA [Suspect]
     Dosage: DOSE BLINDED
     Route: 048
     Dates: start: 20070606, end: 20091214
  5. GILENYA [Suspect]
     Dosage: NO TREATMENT
     Dates: start: 20110305, end: 20110306
  6. NAUSETRON [Concomitant]
     Indication: NAUSEA
     Dosage: UNK
     Dates: start: 20100201, end: 20100503

REACTIONS (4)
  - DIARRHOEA [None]
  - ABDOMINAL PAIN [None]
  - IRRITABLE BOWEL SYNDROME [None]
  - NAUSEA [None]
